FAERS Safety Report 5648993-9 (Version None)
Quarter: 2008Q1

REPORT INFORMATION
  Report Type: 
  Country: None (occurrence: None)
  Receive Date: 20080304
  Receipt Date: 20080206
  Transmission Date: 20080703
  Serious: No
  Sender: FDA-Public Use
  Company Number: US-BAYER-200813366NA

PATIENT
  Age: 40 Year
  Sex: Female
  Weight: 64 kg

DRUGS (1)
  1. MAGNEVIST [Suspect]
     Indication: NECK MASS
     Dosage: TOTAL DAILY DOSE: 14 ML
     Route: 042
     Dates: start: 20080206, end: 20080206

REACTIONS (2)
  - DYSPNOEA [None]
  - SYNCOPE VASOVAGAL [None]
